FAERS Safety Report 24767607 (Version 1)
Quarter: 2024Q4

REPORT INFORMATION
  Report Type: Spontaneous
  Country: US (occurrence: None)
  Receive Date: 20241221
  Receipt Date: 20241221
  Transmission Date: 20250114
  Serious: Yes (Hospitalization, Disabling)
  Sender: Public
  Company Number: None

PATIENT
  Age: 47 Year
  Sex: Female
  Weight: 36.45 kg

DRUGS (6)
  1. METRONIDAZOLE [Suspect]
     Active Substance: METRONIDAZOLE
     Indication: Clostridium difficile infection
     Route: 048
     Dates: start: 20230808, end: 20230819
  2. B1 [Concomitant]
  3. VITAMIN D3 [Concomitant]
     Active Substance: CHOLECALCIFEROL
  4. IRON [Concomitant]
     Active Substance: IRON
  5. VITAMINS [Concomitant]
     Active Substance: VITAMINS
  6. FLAGYL [Concomitant]
     Active Substance: METRONIDAZOLE\METRONIDAZOLE HYDROCHLORIDE

REACTIONS (9)
  - Insomnia [None]
  - Nervous system disorder [None]
  - Panic attack [None]
  - Musculoskeletal stiffness [None]
  - Weight decreased [None]
  - Decreased appetite [None]
  - Asthenia [None]
  - Headache [None]
  - Nervousness [None]

NARRATIVE: CASE EVENT DATE: 20230823
